FAERS Safety Report 19602709 (Version 1)
Quarter: 2021Q3

REPORT INFORMATION
  Report Type: Spontaneous
  Country: US (occurrence: US)
  Receive Date: 20210724
  Receipt Date: 20210724
  Transmission Date: 20211014
  Serious: No
  Sender: FDA-Public Use
  Company Number: US-SA-2021SA241115

PATIENT

DRUGS (3)
  1. ADMELOG [Suspect]
     Active Substance: INSULIN LISPRO
     Dosage: UNK
     Route: 065
  2. LANTUS [Suspect]
     Active Substance: INSULIN GLARGINE
     Dosage: UNK
     Route: 065
  3. TOUJEO [Suspect]
     Active Substance: INSULIN GLARGINE
     Dosage: UNK
     Route: 065

REACTIONS (1)
  - Product storage error [Unknown]
